FAERS Safety Report 18696437 (Version 2)
Quarter: 2021Q1

REPORT INFORMATION
  Report Type: Spontaneous
  Country: US (occurrence: US)
  Receive Date: 20210104
  Receipt Date: 20210224
  Transmission Date: 20210419
  Serious: Yes (Death, Hospitalization, Other)
  Sender: FDA-Public Use
  Company Number: US-ELI_LILLY_AND_COMPANY-US202012013983

PATIENT
  Age: 84 Year
  Sex: Female
  Weight: 59.8 kg

DRUGS (3)
  1. DECADRON [Concomitant]
     Active Substance: DEXAMETHASONE
     Indication: PRODUCT USED FOR UNKNOWN INDICATION
     Dosage: UNK, UNKNOWN
     Route: 065
     Dates: start: 20201218, end: 20201219
  2. BARICITINIB. [Suspect]
     Active Substance: BARICITINIB
     Indication: COVID-19
     Dosage: 2 MG, DAILY
     Route: 048
     Dates: start: 20201219, end: 20201221
  3. REMDESIVIR. [Concomitant]
     Active Substance: REMDESIVIR
     Indication: PRODUCT USED FOR UNKNOWN INDICATION
     Dosage: UNK, UNKNOWN
     Route: 065
     Dates: start: 20201219, end: 20201223

REACTIONS (6)
  - COVID-19 pneumonia [Fatal]
  - Renal impairment [Unknown]
  - Acute respiratory failure [Fatal]
  - Bradycardia [Fatal]
  - Hypotension [Fatal]
  - Hypoxia [Fatal]

NARRATIVE: CASE EVENT DATE: 20201225
